FAERS Safety Report 6374389-0 (Version None)
Quarter: 2009Q3

REPORT INFORMATION
  Report Type: 
  Country: None (occurrence: None)
  Receive Date: 20090921
  Receipt Date: 20090909
  Transmission Date: 20100115
  Serious: Yes (Hospitalization)
  Sender: FDA-Public Use
  Company Number: 230677J09USA

PATIENT
  Age: 51 Year
  Sex: Female
  Weight: 122 kg

DRUGS (7)
  1. REBIF [Suspect]
     Indication: OFF LABEL USE
     Dosage: 44 MCG, 3 IN 1 WEEKS, SUBCUTANEOUS
     Route: 058
     Dates: start: 20080605
  2. AVAPRO [Concomitant]
  3. ATENOLOL [Concomitant]
  4. COUMADIN [Concomitant]
  5. SYNTHROID [Concomitant]
  6. NEURONTIN [Concomitant]
  7. INSULIN (INSULIN /00030501/) [Concomitant]

REACTIONS (13)
  - BLOOD DISORDER [None]
  - BLOOD POTASSIUM INCREASED [None]
  - CELLULITIS [None]
  - CONDITION AGGRAVATED [None]
  - DEMYELINATION [None]
  - EAR INFECTION [None]
  - GAIT DISTURBANCE [None]
  - HYPOAESTHESIA [None]
  - INFECTION [None]
  - NEUROPATHY PERIPHERAL [None]
  - OFF LABEL USE [None]
  - PARAESTHESIA [None]
  - RENAL FAILURE [None]
